FAERS Safety Report 10622574 (Version 1)
Quarter: 2014Q4

REPORT INFORMATION
  Report Type: Spontaneous
  Country: US (occurrence: None)
  Receive Date: 20141202
  Receipt Date: 20141202
  Transmission Date: 20150529
  Serious: No
  Sender: FDA-Public Use
  Company Number: None

PATIENT
  Age: 12 Year
  Sex: Male
  Weight: 47.63 kg

DRUGS (2)
  1. CONCERTA [Concomitant]
     Active Substance: METHYLPHENIDATE HYDROCHLORIDE
  2. METHYLPHENIDATE ER 36 MG [Suspect]
     Active Substance: METHYLPHENIDATE
     Indication: ATTENTION DEFICIT/HYPERACTIVITY DISORDER
     Dosage: 1 PILL
     Route: 048
     Dates: start: 20140605, end: 20141025

REACTIONS (5)
  - Product substitution issue [None]
  - Disturbance in attention [None]
  - Product quality issue [None]
  - Drug ineffective [None]
  - Educational problem [None]

NARRATIVE: CASE EVENT DATE: 20140605
